FAERS Safety Report 14590381 (Version 1)
Quarter: 2018Q1

REPORT INFORMATION
  Report Type: Spontaneous
  Country: US (occurrence: US)
  Receive Date: 20180302
  Receipt Date: 20180302
  Transmission Date: 20180509
  Serious: No
  Sender: FDA-Public Use
  Company Number: US-PFIZER INC-2018089573

PATIENT
  Age: 69 Year
  Sex: Female
  Weight: 87.9 kg

DRUGS (1)
  1. GABAPENTIN. [Suspect]
     Active Substance: GABAPENTIN
     Indication: FIBROMYALGIA
     Dosage: 100 MG, DAILY(100MG CAPSULE DAILY IN THE EVENINGS)
     Route: 048
     Dates: end: 201802

REACTIONS (1)
  - Drug ineffective for unapproved indication [Unknown]
